FAERS Safety Report 23072692 (Version 1)
Quarter: 2023Q4

REPORT INFORMATION
  Report Type: Spontaneous
  Country: US (occurrence: US)
  Receive Date: 20231017
  Receipt Date: 20231017
  Transmission Date: 20240110
  Serious: Yes (Death)
  Sender: FDA-Public Use
  Company Number: US-MTPC-MTDA2023-0024812

PATIENT
  Age: 73 Year
  Sex: Female

DRUGS (2)
  1. RADICAVA [Suspect]
     Active Substance: EDARAVONE
     Indication: Amyotrophic lateral sclerosis
     Dosage: 105 MILLIGRAM, QD FOR 10 DAYS OUT OF 14 CONSECUTIVE DAYS, REST 14 DAYS
     Route: 048
     Dates: start: 20230624
  2. RADICAVA [Suspect]
     Active Substance: EDARAVONE
     Indication: Amyotrophic lateral sclerosis
     Dosage: 105 MILLIGRAM, QD FOR 10 DAYS OUT OF 14 CONSECUTIVE DAYS, REST 14 DAYS
     Route: 048
     Dates: start: 20230624

REACTIONS (1)
  - Death [Fatal]
